FAERS Safety Report 21287250 (Version 1)
Quarter: 2022Q3

REPORT INFORMATION
  Report Type: Spontaneous
  Country: US (occurrence: US)
  Receive Date: 20220902
  Receipt Date: 20220902
  Transmission Date: 20221027
  Serious: No
  Sender: FDA-Public Use
  Company Number: US-Zogenix International Limited, A wholly owned subsidiary of Zogenix, Inc.-2022ZX000264

PATIENT
  Age: 2 Year
  Sex: Male

DRUGS (2)
  1. FINTEPLA [Suspect]
     Active Substance: FENFLURAMINE
     Indication: Severe myoclonic epilepsy of infancy
     Route: 048
  2. FINTEPLA [Suspect]
     Active Substance: FENFLURAMINE
     Indication: Severe myoclonic epilepsy of infancy

REACTIONS (6)
  - Dyspnoea [Unknown]
  - Faeces discoloured [Unknown]
  - Tremor [Unknown]
  - Rash [Unknown]
  - Pyrexia [Unknown]
  - Generalised tonic-clonic seizure [Unknown]
